FAERS Safety Report 7783896-5 (Version None)
Quarter: 2011Q3

REPORT INFORMATION
  Report Type: 
  Country: None (occurrence: None)
  Receive Date: 20110928
  Receipt Date: 20110927
  Transmission Date: 20111222
  Serious: Yes (Other)
  Sender: FDA-Public Use
  Company Number: GB-VIIV HEALTHCARE LIMITED-B0643315A

PATIENT
  Sex: Female

DRUGS (2)
  1. VIRAMUNE [Suspect]
     Indication: HIV INFECTION
     Dates: start: 20070816, end: 20070830
  2. ABACAVIR SULFATE AND LAMIVUDINE [Suspect]

REACTIONS (2)
  - ABORTION INDUCED [None]
  - RASH [None]
